FAERS Safety Report 7211117-0 (Version None)
Quarter: 2010Q4

REPORT INFORMATION
  Report Type: 
  Country: None (occurrence: None)
  Receive Date: 20101223
  Receipt Date: 20101217
  Transmission Date: 20110411
  Serious: Yes (Hospitalization, Other)
  Sender: FDA-Public Use
  Company Number: 2010P1003435

PATIENT
  Age: 67 Year
  Sex: Male
  Weight: 158.759 kg

DRUGS (4)
  1. COLCHICINE [Suspect]
     Indication: GOUT
     Dosage: 0.6 MG; QD PRN; PO
     Route: 048
     Dates: start: 20101001, end: 20101212
  2. ALLOPURINOL [Suspect]
     Indication: GOUT
     Dosage: 100 MG; QD; PO
     Route: 048
     Dates: start: 20101001, end: 20101206
  3. WARFARIN [Concomitant]
  4. OTHER UNSPECIFIED DRUGS [Concomitant]

REACTIONS (6)
  - BLOOD GLUCOSE ABNORMAL [None]
  - BLOOD PRESSURE DECREASED [None]
  - FEELING COLD [None]
  - HAEMORRHAGE [None]
  - RASH PRURITIC [None]
  - SCROTAL HAEMATOCOELE [None]
